FAERS Safety Report 6050053-2 (Version None)
Quarter: 2009Q1

REPORT INFORMATION
  Report Type: 
  Country: None (occurrence: None)
  Receive Date: 20090121
  Receipt Date: 20090114
  Transmission Date: 20090719
  Serious: Yes (Other)
  Sender: FDA-Public Use
  Company Number: 037524

PATIENT
  Age: 58 Year
  Sex: Male

DRUGS (5)
  1. WARFARIN SODIUM [Suspect]
     Indication: ANTICOAGULANT THERAPY
     Dosage: 2-7.5 MG, QD
  2. PENTOXIFYLINE (PENTOXIFYLINE) EXTENDED RELEASE TABLET, 400MG [Suspect]
     Indication: ANTICOAGULANT THERAPY
     Dosage: 200-400 MG, Q8HR
  3. DIPYRIDAMOLE (DIPYRIDAMOLE) TABLET [Suspect]
     Indication: ANTICOAGULANT THERAPY
     Dosage: 75-300 MG, Q8HR
  4. BIVALIRUDIN (BIVALIRUDIN) [Suspect]
     Indication: ANTICOAGULANT THERAPY
     Dosage: INTRAVENOUS
     Route: 042
  5. ACETYLSALICYLIC ACID SRT [Suspect]
     Indication: ANTICOAGULANT THERAPY
     Dosage: 81-162 MG, QD

REACTIONS (3)
  - ABDOMINAL DISCOMFORT [None]
  - DEEP VEIN THROMBOSIS [None]
  - HEART TRANSPLANT [None]
